FAERS Safety Report 23606986 (Version 1)
Quarter: 2024Q1

REPORT INFORMATION
  Report Type: Spontaneous
  Country: US (occurrence: None)
  Receive Date: 20240307
  Receipt Date: 20240307
  Transmission Date: 20240409
  Serious: Yes (Hospitalization, Disabling)
  Sender: FDA-Public Use
  Company Number: None

PATIENT
  Age: 24 Year
  Sex: Male
  Weight: 72 kg

DRUGS (1)
  1. QVAR REDIHALER [Suspect]
     Active Substance: BECLOMETHASONE DIPROPIONATE
     Indication: Asthma
     Dosage: OTHER STRENGTH : MCG;?OTHER QUANTITY : 1 PUFF(S);?
     Route: 055
     Dates: start: 20231215, end: 20240201

REACTIONS (12)
  - Confusional state [None]
  - Agitation [None]
  - Fatigue [None]
  - Weight decreased [None]
  - Vision blurred [None]
  - Asthma [None]
  - Memory impairment [None]
  - Impaired work ability [None]
  - Suicidal ideation [None]
  - Anxiety [None]
  - Nausea [None]
  - Disorientation [None]

NARRATIVE: CASE EVENT DATE: 20240101
